FAERS Safety Report 18606811 (Version 2)
Quarter: 2020Q4

REPORT INFORMATION
  Report Type: Spontaneous
  Country: US (occurrence: US)
  Receive Date: 20201211
  Receipt Date: 20201217
  Transmission Date: 20210114
  Serious: No
  Sender: FDA-Public Use
  Company Number: US-MISSION PHARMACAL COMPANY-2101898

PATIENT
  Age: 56 Year
  Sex: Female

DRUGS (1)
  1. LITHOSTAT [Suspect]
     Active Substance: ACETOHYDROXAMIC ACID
     Route: 048

REACTIONS (2)
  - Skin odour abnormal [Unknown]
  - Product dose omission issue [None]
